FAERS Safety Report 8617716-3 (Version None)
Quarter: 2012Q3

REPORT INFORMATION
  Report Type: 
  Country: None (occurrence: None)
  Receive Date: 20120824
  Receipt Date: 20120104
  Transmission Date: 20120928
  Serious: No
  Sender: FDA-Public Use
  Company Number: US-ASTRAZENECA-2012SE00655

PATIENT
  Age: 65 Year
  Sex: Male
  Weight: 84.8 kg

DRUGS (3)
  1. MIRAPEX [Concomitant]
  2. SYMBICORT [Suspect]
     Indication: CHRONIC OBSTRUCTIVE PULMONARY DISEASE
     Dosage: TWO PUFFS TWO TIMES A DAY
     Route: 055
  3. GABAPENTIN [Concomitant]

REACTIONS (2)
  - VOCAL CORD DISORDER [None]
  - DYSPHONIA [None]
